FAERS Safety Report 5223708-7 (Version None)
Quarter: 2007Q1

REPORT INFORMATION
  Report Type: 
  Country: None (occurrence: None)
  Receive Date: 20070126
  Receipt Date: 20070118
  Transmission Date: 20070707
  Serious: Yes (Death, Life-Threatening, Hospitalization)
  Sender: FDA-Public Use
  Company Number: 2007BI000103

PATIENT
  Age: 37 Year
  Sex: Female
  Weight: 55 kg

DRUGS (8)
  1. AVONEX [Suspect]
     Indication: MULTIPLE SCLEROSIS
     Dosage: 30 MG;QW;IM
     Route: 030
     Dates: start: 20010101, end: 20060718
  2. AZATHIOPRINE [Concomitant]
  3. GABAPENTIN [Concomitant]
  4. PREGABALINE [Concomitant]
  5. CORTISONE ACETATE [Concomitant]
  6. CALCIUM [Concomitant]
  7. PREDNISOLONE [Concomitant]
  8. ALENDRONATE SODIUM [Concomitant]

REACTIONS (1)
  - UROSEPSIS [None]
